FAERS Safety Report 6805893-6 (Version None)
Quarter: 2010Q2

REPORT INFORMATION
  Report Type: 
  Country: None (occurrence: None)
  Receive Date: 20100629
  Receipt Date: 20071107
  Transmission Date: 20101027
  Serious: No
  Sender: FDA-Public Use
  Company Number: US-PFIZER INC-2007090820

PATIENT
  Sex: Male
  Weight: 99.8 kg

DRUGS (7)
  1. VIAGRA [Suspect]
     Indication: ERECTILE DYSFUNCTION
     Route: 048
  2. WARFARIN SODIUM [Concomitant]
  3. MULTIPLE VITAMINS [Concomitant]
  4. MINERALS NOS [Concomitant]
  5. CALCIUM CARBONATE [Concomitant]
  6. FISH OIL [Concomitant]
  7. CAVERJECT [Concomitant]

REACTIONS (2)
  - BLOOD TESTOSTERONE INCREASED [None]
  - DRUG INEFFECTIVE [None]
